FAERS Safety Report 17049054 (Version 1)
Quarter: 2019Q4

REPORT INFORMATION
  Report Type: Spontaneous
  Country: US (occurrence: US)
  Receive Date: 20191119
  Receipt Date: 20191119
  Transmission Date: 20200122
  Serious: No
  Sender: FDA-Public Use
  Company Number: US-SA-2019SA314131

PATIENT
  Sex: Female

DRUGS (3)
  1. BETAMETH [BETAMETHASONE SODIUM PHOSPHATE] [Concomitant]
  2. MUPIROCIN. [Concomitant]
     Active Substance: MUPIROCIN
  3. DUPIXENT [Suspect]
     Active Substance: DUPILUMAB
     Indication: DERMATITIS ATOPIC
     Dosage: 300 MG, QOW, SOLUTION FOR INJECTION
     Route: 058
     Dates: start: 20190524

REACTIONS (1)
  - Menstruation irregular [Not Recovered/Not Resolved]
